FAERS Safety Report 7007122-X (Version None)
Quarter: 2010Q3

REPORT INFORMATION
  Report Type: 
  Country: None (occurrence: None)
  Receive Date: 20100922
  Receipt Date: 20070117
  Transmission Date: 20110219
  Serious: Yes (Other)
  Sender: FDA-Public Use
  Company Number: IT-CELGENEUS-083-20785-07010800

PATIENT

DRUGS (6)
  1. THALIDOMIDE [Suspect]
     Indication: MYELOMA RECURRENCE
     Route: 048
     Dates: start: 20041101, end: 20050801
  2. BORTEZOMIB [Concomitant]
     Indication: MYELOMA RECURRENCE
     Route: 040
     Dates: start: 20041101, end: 20050801
  3. BORTEZOMIB [Concomitant]
     Route: 040
  4. BORTEZOMIB [Concomitant]
     Route: 040
  5. MELPHALAN HYDROCHLORIDE [Concomitant]
     Indication: MYELOMA RECURRENCE
     Route: 048
     Dates: start: 20041101, end: 20050801
  6. PREDNISONE [Concomitant]
     Indication: MYELOMA RECURRENCE
     Route: 048
     Dates: start: 20041101, end: 20050801

REACTIONS (11)
  - ANAEMIA [None]
  - FATIGUE [None]
  - FEBRILE NEUTROPENIA [None]
  - HERPES ZOSTER [None]
  - INFECTION [None]
  - NEUROPATHY PERIPHERAL [None]
  - NEUTROPENIA [None]
  - OESOPHAGEAL INFECTION [None]
  - PNEUMONIA [None]
  - THROMBOCYTOPENIA [None]
  - VASCULITIS [None]
